FAERS Safety Report 14283757 (Version 1)
Quarter: 2017Q4

REPORT INFORMATION
  Report Type: Report from Study
  Country: JP (occurrence: JP)
  Receive Date: 20171214
  Receipt Date: 20171214
  Transmission Date: 20180321
  Serious: Yes (Other)
  Sender: FDA-Public Use
  Company Number: JP-VIFOR (INTERNATIONAL) INC.-VIT-2017-02836

PATIENT
  Age: 80 Year
  Sex: Female
  Weight: 87.6 kg

DRUGS (54)
  1. LYRICA [Concomitant]
     Active Substance: PREGABALIN
     Route: 048
  2. GASTER [Concomitant]
     Active Substance: FAMOTIDINE
     Indication: GASTRITIS PROPHYLAXIS
     Route: 048
  3. METLIGINE [Concomitant]
     Active Substance: MIDODRINE HYDROCHLORIDE
     Route: 048
  4. MUCOSOLVAN [Concomitant]
     Active Substance: AMBROXOL HYDROCHLORIDE
     Indication: CELLULITIS
     Route: 048
     Dates: start: 20161025, end: 20161101
  5. RISUMIC [Concomitant]
     Active Substance: AMEZINIUM METILSULFATE
     Route: 048
     Dates: start: 20161108, end: 20161229
  6. HACHIAZULE [Concomitant]
     Indication: OROPHARYNGEAL PAIN
     Route: 048
     Dates: start: 20161119, end: 20161123
  7. TSUMURA KAKKONTOKASENKYUSHINI [Concomitant]
     Route: 048
     Dates: start: 20170425, end: 20170429
  8. MIRCERA [Concomitant]
     Active Substance: METHOXY POLYETHYLENE GLYCOL-EPOETIN BETA
     Dates: start: 20170722
  9. SINGULAIR [Concomitant]
     Active Substance: MONTELUKAST SODIUM
     Route: 048
     Dates: end: 20170608
  10. HALCION [Concomitant]
     Active Substance: TRIAZOLAM
     Route: 048
  11. NEUROVITAN [Concomitant]
     Active Substance: VITAMINS
     Route: 048
     Dates: start: 20161027, end: 20161107
  12. FIRSTCIN [Concomitant]
     Active Substance: CEFOZOPRAN HYDROCHLORIDE
     Indication: WOUND INFECTION
     Dates: start: 20161222, end: 20161222
  13. MIRCERA [Concomitant]
     Active Substance: METHOXY POLYETHYLENE GLYCOL-EPOETIN BETA
     Dates: end: 20161121
  14. MIRCERA [Concomitant]
     Active Substance: METHOXY POLYETHYLENE GLYCOL-EPOETIN BETA
     Dates: start: 20170128, end: 20170324
  15. HOKUNALIN TAPE [Concomitant]
     Active Substance: TULOBUTEROL
     Route: 050
  16. KENALOG IN ORABASE [Concomitant]
     Active Substance: TRIAMCINOLONE ACETONIDE
     Dates: start: 20161027
  17. SP TROCHES [Concomitant]
     Active Substance: DEQUALINIUM CHLORIDE
     Indication: PROPHYLAXIS
  18. PL COMBINATION [Concomitant]
     Route: 048
     Dates: start: 20170126, end: 20170202
  19. FOSRENOL [Concomitant]
     Active Substance: LANTHANUM CARBONATE
     Indication: HYPERPHOSPHATAEMIA
     Route: 048
     Dates: end: 20170130
  20. FESIN [Concomitant]
     Active Substance: IRON SUCROSE
     Dates: start: 20161025, end: 20170110
  21. FEBURIC [Concomitant]
     Active Substance: FEBUXOSTAT
     Route: 048
     Dates: start: 20170422
  22. PL COMBINATION [Concomitant]
     Indication: PROPHYLAXIS
     Route: 048
     Dates: start: 20170328, end: 20170331
  23. PL COMBINATION [Concomitant]
     Route: 048
     Dates: start: 20170429, end: 20170502
  24. MIRCERA [Concomitant]
     Active Substance: METHOXY POLYETHYLENE GLYCOL-EPOETIN BETA
     Dates: start: 20170325, end: 20170721
  25. CALCIUM CARBONATE. [Concomitant]
     Active Substance: CALCIUM CARBONATE
     Indication: HYPERPHOSPHATAEMIA
     Route: 048
     Dates: end: 20170424
  26. ALLEGRA [Concomitant]
     Active Substance: FEXOFENADINE HYDROCHLORIDE
     Route: 048
     Dates: end: 20170608
  27. FLOMOX [Concomitant]
     Active Substance: CEFCAPENE PIVOXIL HYDROCHLORIDE HYDRATE
     Indication: PROPHYLAXIS
     Route: 048
     Dates: start: 20161222, end: 20170105
  28. SG COMBINATION GRANULES [Concomitant]
     Indication: PROPHYLAXIS
  29. RIONA [Concomitant]
     Active Substance: FERRIC CITRATE ANHYDROUS
     Indication: HYPERPHOSPHATAEMIA
     Route: 048
     Dates: start: 20170425, end: 20170726
  30. RIONA [Concomitant]
     Active Substance: FERRIC CITRATE ANHYDROUS
     Route: 048
     Dates: start: 20170727
  31. UREPEARL [Concomitant]
     Active Substance: UREA
     Indication: PROPHYLAXIS
  32. VELPHORO [Suspect]
     Active Substance: FERRIC OXYHYDROXIDE
     Indication: HYPERPHOSPHATAEMIA
     Route: 048
     Dates: start: 20161022, end: 20170224
  33. SELBEX [Concomitant]
     Active Substance: TEPRENONE
     Indication: HEADACHE
     Route: 048
     Dates: start: 20161103
  34. HACHIAZULE [Concomitant]
     Indication: OROPHARYNGEAL PAIN
     Route: 048
     Dates: start: 20170422, end: 20170427
  35. FLOMOX [Concomitant]
     Active Substance: CEFCAPENE PIVOXIL HYDROCHLORIDE HYDRATE
     Indication: WOUND INFECTION
     Route: 048
     Dates: start: 20161124, end: 20161126
  36. ADALAT [Concomitant]
     Active Substance: NIFEDIPINE
     Indication: PROPHYLAXIS
  37. ZEFNART [Concomitant]
  38. SG COMBINATION GRANULES [Concomitant]
     Indication: HEADACHE
     Route: 048
     Dates: start: 20161103
  39. PL COMBINATION [Concomitant]
     Route: 048
     Dates: start: 20170406, end: 20170412
  40. VELPHORO [Suspect]
     Active Substance: FERRIC OXYHYDROXIDE
     Route: 048
     Dates: start: 20170225, end: 20170727
  41. MINITRO TAPE [Concomitant]
     Route: 050
  42. FOSRENOL [Concomitant]
     Active Substance: LANTHANUM CARBONATE
     Route: 048
     Dates: start: 20170131
  43. MOHRUS [Concomitant]
     Active Substance: KETOPROFEN
     Route: 050
  44. FIRSTCIN [Concomitant]
     Active Substance: CEFOZOPRAN HYDROCHLORIDE
     Indication: PROPHYLAXIS
  45. TSUMURA KAKKONTOKASENKYUSHINI [Concomitant]
     Route: 048
     Dates: start: 20170105, end: 20170108
  46. PL COMBINATION [Concomitant]
     Indication: NASOPHARYNGITIS
     Route: 048
     Dates: start: 20170214, end: 20170220
  47. UREPEARL [Concomitant]
     Active Substance: UREA
     Indication: DRY SKIN
     Route: 050
     Dates: start: 20170225
  48. UREPEARL [Concomitant]
     Active Substance: UREA
     Indication: PRURITUS
  49. MIRCERA [Concomitant]
     Active Substance: METHOXY POLYETHYLENE GLYCOL-EPOETIN BETA
     Dates: start: 20161122, end: 20161213
  50. MIRCERA [Concomitant]
     Active Substance: METHOXY POLYETHYLENE GLYCOL-EPOETIN BETA
     Dates: start: 20161213, end: 20170127
  51. LENDORMIN D [Concomitant]
     Active Substance: BROTIZOLAM
     Route: 048
  52. SELBEX [Concomitant]
     Active Substance: TEPRENONE
     Indication: GASTRITIS PROPHYLAXIS
  53. SP TROCHES [Concomitant]
     Active Substance: DEQUALINIUM CHLORIDE
     Indication: OROPHARYNGEAL PAIN
     Route: 048
     Dates: start: 20161112
  54. ADALAT [Concomitant]
     Active Substance: NIFEDIPINE
     Indication: HYPERTENSION
     Route: 048
     Dates: start: 20161227

REACTIONS (8)
  - Diarrhoea [Recovered/Resolved]
  - Faeces discoloured [Recovered/Resolved]
  - Humerus fracture [Recovered/Resolved]
  - Dizziness [Recovered/Resolved]
  - Epidermolysis [Recovered/Resolved]
  - Stomatitis [Recovered/Resolved]
  - Flushing [Recovered/Resolved]
  - Hot flush [Recovered/Resolved]

NARRATIVE: CASE EVENT DATE: 20161024
